FAERS Safety Report 7155882-X (Version None)
Quarter: 2010Q4

REPORT INFORMATION
  Report Type: 
  Country: None (occurrence: None)
  Receive Date: 20101214
  Receipt Date: 20101203
  Transmission Date: 20110411
  Serious: Yes (Hospitalization)
  Sender: FDA-Public Use
  Company Number: US-JNJFOC-20101202932

PATIENT
  Sex: Male
  Weight: 54.6 kg

DRUGS (8)
  1. REMICADE [Suspect]
     Indication: CROHN'S DISEASE
     Route: 042
  2. REMICADE [Suspect]
     Route: 042
  3. MESALAMINE [Concomitant]
     Route: 048
  4. ANTIBIOTICS [Concomitant]
     Indication: INFLAMMATORY BOWEL DISEASE
  5. NEXIUM [Concomitant]
  6. FERROUS  SULFATE [Concomitant]
  7. MULTIPLE VITAMIN [Concomitant]
  8. PREDNISONE [Concomitant]

REACTIONS (1)
  - CROHN'S DISEASE [None]
